FAERS Safety Report 4364944-1 (Version None)
Quarter: 2004Q2

REPORT INFORMATION
  Report Type: 
  Country: None (occurrence: None)
  Receive Date: 20040521
  Receipt Date: 20040430
  Transmission Date: 20050107
  Serious: Yes (Death)
  Sender: FDA-Public Use
  Company Number: DE_040413510

PATIENT
  Age: 64 Year
  Sex: Female

DRUGS (1)
  1. LORAFEM (LORACARBEF) [Suspect]
     Indication: PERITONSILLAR ABSCESS
     Dosage: 400 MG/1 IN THE MORNING
     Dates: start: 20031124

REACTIONS (1)
  - ANAPHYLACTIC SHOCK [None]
